FAERS Safety Report 25037647 (Version 1)
Quarter: 2025Q1

REPORT INFORMATION
  Report Type: Spontaneous
  Country: US (occurrence: US)
  Receive Date: 20250304
  Receipt Date: 20250304
  Transmission Date: 20250408
  Serious: No
  Sender: BAYER HEALTHCARE LLC
  Company Number: US-BAYER-2025A029586

PATIENT
  Age: 67 Year
  Sex: Male

DRUGS (5)
  1. ASTEPRO [Suspect]
     Active Substance: AZELASTINE HYDROCHLORIDE
     Indication: Hypersensitivity
     Dosage: 1 SPRAY ON EACH NOSTRIL
     Route: 045
     Dates: start: 20250221, end: 20250223
  2. ASTEPRO [Suspect]
     Active Substance: AZELASTINE HYDROCHLORIDE
     Indication: Nasopharyngitis
     Route: 045
     Dates: start: 20250224, end: 20250225
  3. ASTEPRO [Suspect]
     Active Substance: AZELASTINE HYDROCHLORIDE
     Indication: Nasal congestion
  4. LEVOCETIRIZINE DIHYDROCHLORIDE [Concomitant]
     Active Substance: LEVOCETIRIZINE DIHYDROCHLORIDE
  5. MUCINEX [Concomitant]
     Active Substance: GUAIFENESIN

REACTIONS (5)
  - Insomnia [Recovering/Resolving]
  - Drug ineffective [None]
  - Somnolence [None]
  - Incorrect dose administered [None]
  - Product prescribing issue [None]

NARRATIVE: CASE EVENT DATE: 20250221
